FAERS Safety Report 25293568 (Version 1)
Quarter: 2025Q2

REPORT INFORMATION
  Report Type: Spontaneous
  Country: US (occurrence: US)
  Receive Date: 20250510
  Receipt Date: 20250510
  Transmission Date: 20250717
  Serious: No
  Sender: SANOFI AVENTIS
  Company Number: US-SA-2025SA125596

PATIENT
  Age: 42 Year
  Sex: Male
  Weight: 96.599 kg

DRUGS (1)
  1. DUPIXENT [Suspect]
     Active Substance: DUPILUMAB
     Dosage: 300 MG, QOW
     Route: 058

REACTIONS (4)
  - Rash macular [Recovered/Resolved]
  - Rebound effect [Recovered/Resolved]
  - Pruritus [Unknown]
  - Product dose omission issue [Unknown]
